FAERS Safety Report 24228137 (Version 1)
Quarter: 2024Q3

REPORT INFORMATION
  Report Type: Spontaneous
  Country: FR (occurrence: FR)
  Receive Date: 20240820
  Receipt Date: 20240820
  Transmission Date: 20241017
  Serious: Yes (Other)
  Sender: RANBAXY
  Company Number: FR-SUN PHARMACEUTICAL INDUSTRIES LTD-2024RR-462821

PATIENT
  Age: 26 Year
  Sex: Male
  Weight: 69 kg

DRUGS (3)
  1. ACETAMINOPHEN [Suspect]
     Active Substance: ACETAMINOPHEN
     Indication: Pain
     Dosage: 12 GRAM, TOTAL 1
     Route: 065
     Dates: start: 20230615, end: 20230615
  2. KETOPROFEN [Suspect]
     Active Substance: KETOPROFEN
     Indication: Pain
     Dosage: 10 DOSAGE FORM, TOTAL 1
     Route: 065
     Dates: start: 20230615, end: 20230615
  3. AUGMENTIN [Suspect]
     Active Substance: AMOXICILLIN\CLAVULANATE POTASSIUM
     Indication: Pain
     Dosage: 10 DOSAGE FORM, TOTAL 1
     Route: 065
     Dates: start: 20230615, end: 20230615

REACTIONS (2)
  - Intentional product misuse [Recovered/Resolved]
  - Vomiting [Recovering/Resolving]

NARRATIVE: CASE EVENT DATE: 20230615
